FAERS Safety Report 25727022 (Version 1)
Quarter: 2025Q3

REPORT INFORMATION
  Report Type: Spontaneous
  Country: US (occurrence: US)
  Receive Date: 20250826
  Receipt Date: 20250826
  Transmission Date: 20251021
  Serious: Yes (Other)
  Sender: MYLAN
  Company Number: US-MYLANLABS-2025M1071111

PATIENT
  Age: 73 Year
  Sex: Female

DRUGS (60)
  1. CELECOXIB [Suspect]
     Active Substance: CELECOXIB
     Indication: Palmar-plantar erythrodysaesthesia syndrome
     Dosage: 100 MILLIGRAM, BID
  2. CELECOXIB [Suspect]
     Active Substance: CELECOXIB
     Dosage: 100 MILLIGRAM, BID
  3. CELECOXIB [Suspect]
     Active Substance: CELECOXIB
     Dosage: 100 MILLIGRAM, BID
     Route: 065
  4. CELECOXIB [Suspect]
     Active Substance: CELECOXIB
     Dosage: 100 MILLIGRAM, BID
     Route: 065
  5. CELECOXIB [Suspect]
     Active Substance: CELECOXIB
     Dosage: 200 MILLIGRAM, BID
  6. CELECOXIB [Suspect]
     Active Substance: CELECOXIB
     Dosage: 200 MILLIGRAM, BID
  7. CELECOXIB [Suspect]
     Active Substance: CELECOXIB
     Dosage: 200 MILLIGRAM, BID
     Route: 065
  8. CELECOXIB [Suspect]
     Active Substance: CELECOXIB
     Dosage: 200 MILLIGRAM, BID
     Route: 065
  9. BETAMETHASONE DIPROPIONATE [Suspect]
     Active Substance: BETAMETHASONE DIPROPIONATE
     Indication: Palmar-plantar erythrodysaesthesia syndrome
  10. BETAMETHASONE DIPROPIONATE [Suspect]
     Active Substance: BETAMETHASONE DIPROPIONATE
     Route: 061
  11. BETAMETHASONE DIPROPIONATE [Suspect]
     Active Substance: BETAMETHASONE DIPROPIONATE
     Route: 061
  12. BETAMETHASONE DIPROPIONATE [Suspect]
     Active Substance: BETAMETHASONE DIPROPIONATE
  13. HALOBETASOL [Suspect]
     Active Substance: HALOBETASOL
     Indication: Palmar-plantar erythrodysaesthesia syndrome
  14. HALOBETASOL [Suspect]
     Active Substance: HALOBETASOL
     Route: 061
  15. HALOBETASOL [Suspect]
     Active Substance: HALOBETASOL
     Route: 061
  16. HALOBETASOL [Suspect]
     Active Substance: HALOBETASOL
  17. CLOBETASOL [Suspect]
     Active Substance: CLOBETASOL
     Indication: Palmar-plantar erythrodysaesthesia syndrome
  18. CLOBETASOL [Suspect]
     Active Substance: CLOBETASOL
     Route: 061
  19. CLOBETASOL [Suspect]
     Active Substance: CLOBETASOL
     Route: 061
  20. CLOBETASOL [Suspect]
     Active Substance: CLOBETASOL
  21. DICLOFENAC [Suspect]
     Active Substance: DICLOFENAC
     Indication: Pain
  22. DICLOFENAC [Suspect]
     Active Substance: DICLOFENAC
     Indication: Palmar-plantar erythrodysaesthesia syndrome
     Route: 065
  23. DICLOFENAC [Suspect]
     Active Substance: DICLOFENAC
     Route: 065
  24. DICLOFENAC [Suspect]
     Active Substance: DICLOFENAC
  25. ZINC SULFATE [Suspect]
     Active Substance: ZINC SULFATE
     Indication: Palmar-plantar erythrodysaesthesia syndrome
  26. ZINC SULFATE [Suspect]
     Active Substance: ZINC SULFATE
     Route: 048
  27. ZINC SULFATE [Suspect]
     Active Substance: ZINC SULFATE
     Route: 048
  28. ZINC SULFATE [Suspect]
     Active Substance: ZINC SULFATE
  29. UREA [Suspect]
     Active Substance: UREA
     Indication: Palmar-plantar erythrodysaesthesia syndrome
  30. UREA [Suspect]
     Active Substance: UREA
     Route: 061
  31. UREA [Suspect]
     Active Substance: UREA
     Route: 061
  32. UREA [Suspect]
     Active Substance: UREA
  33. UREA [Suspect]
     Active Substance: UREA
     Indication: Palmar-plantar erythrodysaesthesia syndrome
  34. UREA [Suspect]
     Active Substance: UREA
     Route: 061
  35. UREA [Suspect]
     Active Substance: UREA
     Route: 061
  36. UREA [Suspect]
     Active Substance: UREA
  37. LIDOCAINE [Suspect]
     Active Substance: LIDOCAINE
     Indication: Palmar-plantar erythrodysaesthesia syndrome
  38. LIDOCAINE [Suspect]
     Active Substance: LIDOCAINE
     Route: 065
  39. LIDOCAINE [Suspect]
     Active Substance: LIDOCAINE
     Route: 065
  40. LIDOCAINE [Suspect]
     Active Substance: LIDOCAINE
  41. LIDOCAINE [Suspect]
     Active Substance: LIDOCAINE
     Indication: Palmar-plantar erythrodysaesthesia syndrome
  42. LIDOCAINE [Suspect]
     Active Substance: LIDOCAINE
     Route: 065
  43. LIDOCAINE [Suspect]
     Active Substance: LIDOCAINE
     Route: 065
  44. LIDOCAINE [Suspect]
     Active Substance: LIDOCAINE
  45. CAPECITABINE [Concomitant]
     Active Substance: CAPECITABINE
     Indication: Breast cancer metastatic
     Dosage: 1500 MILLIGRAM, BID
  46. CAPECITABINE [Concomitant]
     Active Substance: CAPECITABINE
     Dosage: 1500 MILLIGRAM, BID
  47. CAPECITABINE [Concomitant]
     Active Substance: CAPECITABINE
     Dosage: 1500 MILLIGRAM, BID
     Route: 065
  48. CAPECITABINE [Concomitant]
     Active Substance: CAPECITABINE
     Dosage: 1500 MILLIGRAM, BID
     Route: 065
  49. CAPECITABINE [Concomitant]
     Active Substance: CAPECITABINE
     Dosage: 1000 MILLIGRAM, BID
  50. CAPECITABINE [Concomitant]
     Active Substance: CAPECITABINE
     Dosage: 1000 MILLIGRAM, BID
  51. CAPECITABINE [Concomitant]
     Active Substance: CAPECITABINE
     Dosage: 1000 MILLIGRAM, BID
     Route: 065
  52. CAPECITABINE [Concomitant]
     Active Substance: CAPECITABINE
     Dosage: 1000 MILLIGRAM, BID
     Route: 065
  53. DUPILUMAB [Concomitant]
     Active Substance: DUPILUMAB
     Indication: Palmar-plantar erythrodysaesthesia syndrome
  54. DUPILUMAB [Concomitant]
     Active Substance: DUPILUMAB
  55. DUPILUMAB [Concomitant]
     Active Substance: DUPILUMAB
     Route: 058
  56. DUPILUMAB [Concomitant]
     Active Substance: DUPILUMAB
     Route: 058
  57. DUPILUMAB [Concomitant]
     Active Substance: DUPILUMAB
     Dosage: 300 MILLIGRAM, Q2W
  58. DUPILUMAB [Concomitant]
     Active Substance: DUPILUMAB
     Dosage: 300 MILLIGRAM, Q2W
  59. DUPILUMAB [Concomitant]
     Active Substance: DUPILUMAB
     Dosage: 300 MILLIGRAM, Q2W
     Route: 058
  60. DUPILUMAB [Concomitant]
     Active Substance: DUPILUMAB
     Dosage: 300 MILLIGRAM, Q2W
     Route: 058

REACTIONS (2)
  - Drug ineffective for unapproved indication [Unknown]
  - Off label use [Unknown]
